FAERS Safety Report 4837690-5 (Version None)
Quarter: 2005Q4

REPORT INFORMATION
  Report Type: 
  Country: None (occurrence: None)
  Receive Date: 20051128
  Receipt Date: 20051004
  Transmission Date: 20060501
  Serious: Yes (Hospitalization)
  Sender: FDA-Public Use
  Company Number: CA-MERCK-0510CAN00150

PATIENT
  Age: 67 Year
  Sex: Female
  Weight: 68 kg

DRUGS (3)
  1. VIOXX [Suspect]
     Route: 048
     Dates: start: 20030504, end: 20050412
  2. ESTROPIPATE [Concomitant]
     Route: 065
  3. PROGESTERONE [Concomitant]
     Route: 065

REACTIONS (6)
  - BICUSPID AORTIC VALVE [None]
  - CORONARY ARTERY STENOSIS [None]
  - DIASTOLIC DYSFUNCTION [None]
  - MYOCARDIAL INFARCTION [None]
  - TRICUSPID VALVE INCOMPETENCE [None]
  - VENTRICULAR HYPERTROPHY [None]
